FAERS Safety Report 25007393 (Version 1)
Quarter: 2025Q1

REPORT INFORMATION
  Report Type: Report from Study
  Country: US (occurrence: US)
  Receive Date: 20250225
  Receipt Date: 20250225
  Transmission Date: 20250408
  Serious: Yes (Other)
  Sender: ALEXION PHARMACEUTICALS
  Company Number: US-AstraZeneca-CH-00810735A

PATIENT
  Weight: 42.177 kg

DRUGS (6)
  1. SELUMETINIB [Suspect]
     Active Substance: SELUMETINIB
     Indication: Brain neoplasm malignant
     Dosage: 30 MILLIGRAM, BID
  2. ROCEPHIN [Concomitant]
     Active Substance: CEFTRIAXONE SODIUM
     Route: 065
  3. CLARITIN [Concomitant]
     Active Substance: LORATADINE
     Route: 065
  4. CLINDAMYCIN [Concomitant]
     Active Substance: CLINDAMYCIN
     Route: 065
  5. MUPIROCIN [Concomitant]
     Active Substance: MUPIROCIN
     Route: 065
  6. CEFDINIR [Concomitant]
     Active Substance: CEFDINIR
     Route: 065

REACTIONS (2)
  - Central sleep apnoea syndrome [Not Recovered/Not Resolved]
  - Obstructive sleep apnoea syndrome [Not Recovered/Not Resolved]
